FAERS Safety Report 20428837 (Version 22)
Quarter: 2024Q4

REPORT INFORMATION
  Report Type: Other
  Country: GB (occurrence: GB)
  Receive Date: 20220204
  Receipt Date: 20241003
  Transmission Date: 20250115
  Serious: Yes (Hospitalization, Other)
  Sender: STRIDES
  Company Number: None

PATIENT
  Age: 68 Year
  Sex: Female
  Weight: 92 kg

DRUGS (279)
  1. OMEPRAZOLE [Suspect]
     Active Substance: OMEPRAZOLE
     Indication: Abdominal discomfort
     Dosage: 20 MILLIGRAM, BID
     Route: 065
  2. OMEPRAZOLE [Suspect]
     Active Substance: OMEPRAZOLE
     Indication: Gastrointestinal disorder
     Dosage: 20 MILLIGRAM, BID.40 MG, QD 2X/DAY
     Route: 065
     Dates: start: 20100917
  3. OMEPRAZOLE [Suspect]
     Active Substance: OMEPRAZOLE
     Dosage: 20 MILLIGRAM, BID
     Route: 065
     Dates: start: 20100917
  4. OMEPRAZOLE [Suspect]
     Active Substance: OMEPRAZOLE
     Dosage: 80 MG, QD
     Route: 065
     Dates: start: 20100917
  5. OMEPRAZOLE [Suspect]
     Active Substance: OMEPRAZOLE
     Dosage: 20 MILLIGRAM, QD (PER DAY) (CUMULATIVE DOSE TO FIRST REACTION:~280.0 MG)
     Route: 065
     Dates: start: 20200917
  6. OMEPRAZOLE [Suspect]
     Active Substance: OMEPRAZOLE
     Dosage: 80 MG, QD
     Route: 065
     Dates: start: 20200917
  7. OMEPRAZOLE [Suspect]
     Active Substance: OMEPRAZOLE
     Dosage: 40 MILLIGRAM, QD, 20 MG, 2X/DAY
     Route: 065
     Dates: start: 20100917
  8. OMEPRAZOLE [Suspect]
     Active Substance: OMEPRAZOLE
     Dosage: 20 MILLIGRAM, EVERY HOUR, 480 MILLIGRAM DAILY; 20 MG, 2X/DAY
     Route: 065
  9. OMEPRAZOLE [Suspect]
     Active Substance: OMEPRAZOLE
     Dosage: 20 MILLIGRAM, EVERY HOUR, 480 MILLIGRAM DAILY; 20 MG, 2X/DAY
     Route: 065
  10. OMEPRAZOLE [Suspect]
     Active Substance: OMEPRAZOLE
     Dosage: UNK
     Route: 065
  11. OMEPRAZOLE [Suspect]
     Active Substance: OMEPRAZOLE
     Dosage: 80 MILLIGRAM, QD (PER DAY) 20 MG, QD (CUMULATIVE DOSE TO FIRST REACTION: 293360.0 MG)
     Route: 065
     Dates: start: 20100917
  12. OMEPRAZOLE [Suspect]
     Active Substance: OMEPRAZOLE
     Dosage: 80 MILLIGRAM, QD PER DAY 40 MILLIGRAM, QD, 20 MG, 2X/DAY
     Route: 065
     Dates: start: 20100917
  13. OMEPRAZOLE [Suspect]
     Active Substance: OMEPRAZOLE
     Dosage: 80 MILLIGRAM,20 MG, 2X/DAY,
     Route: 065
     Dates: start: 20100917
  14. OMEPRAZOLE [Suspect]
     Active Substance: OMEPRAZOLE
     Dosage: 20 MILLIGRAM QD (PER DAY)
     Route: 065
     Dates: start: 20100917
  15. OMEPRAZOLE [Suspect]
     Active Substance: OMEPRAZOLE
     Dosage: 20 MILLIGRAM PER DAY (20 MG, QD, BATCH AND LOT TESTED AND FOUND WITHIN SPECIFICATIONS, MEDICATION ER
     Route: 065
     Dates: start: 20100917
  16. OMEPRAZOLE [Suspect]
     Active Substance: OMEPRAZOLE
     Dosage: 20 MILLIGRAM PER 12 HOUR
     Route: 065
     Dates: start: 20100917
  17. OMEPRAZOLE [Suspect]
     Active Substance: OMEPRAZOLE
     Dosage: 20 MILLIGRAM PER DAY (CUMULATIVE DOSE: 280.0 MG)
     Route: 065
     Dates: start: 20100917
  18. OMEPRAZOLE [Suspect]
     Active Substance: OMEPRAZOLE
     Dosage: 80 MILLIGRAM PER DAY QD
     Route: 065
  19. OMEPRAZOLE [Suspect]
     Active Substance: OMEPRAZOLE
     Dosage: 20 MILLIGRAM PER 12 HOUR, 20 MG,  2X/DAY
     Route: 065
  20. OMEPRAZOLE [Suspect]
     Active Substance: OMEPRAZOLE
     Dosage: 20 MILLIGRAM, EVERY HOUR, 480 MILLIGRAM DAILY; 20 MG, 2X/DAY
     Route: 065
  21. OMEPRAZOLE [Suspect]
     Active Substance: OMEPRAZOLE
     Dosage: 80 MILLIGRAM, QD (CUMULATIVE DOSE TO FIRST REACTION:1120.0 MG)
     Route: 065
     Dates: start: 20200917
  22. OMEPRAZOLE [Suspect]
     Active Substance: OMEPRAZOLE
     Dosage: 20 MILLIGRAM, EVERY HOUR, 480 MILLIGRAM DAILY; 20 MG, 2X/DAY
     Route: 065
  23. METHOTREXATE [Suspect]
     Active Substance: METHOTREXATE
     Indication: Rheumatoid arthritis
     Dosage: WEEKLY
     Route: 065
     Dates: start: 20100917
  24. METHOTREXATE [Suspect]
     Active Substance: METHOTREXATE
     Dosage: 18 MILLIGRAM, PER WEEK WEEKLY (AT 17.5, WEEKLY)
     Route: 065
     Dates: start: 20100917
  25. METHOTREXATE [Suspect]
     Active Substance: METHOTREXATE
     Dosage: UNK, 1 ONCE A WEEK (QW)
     Route: 065
  26. METHOTREXATE [Suspect]
     Active Substance: METHOTREXATE
     Dosage: 17.5 MILLIGRAM, ONCE A WEEK (CUMULATIVE DOSE TO FIRST REACTION:9167.5 MG)
     Route: 065
     Dates: start: 20100917
  27. METHOTREXATE [Suspect]
     Active Substance: METHOTREXATE
     Dosage: 17.5 MILLIGRAM, ONCE A WEEK
     Route: 065
     Dates: start: 20100917
  28. METHOTREXATE [Suspect]
     Active Substance: METHOTREXATE
     Dosage: 18 MILLIGRAM, PER WEEK WEEKLY (AT 17.5, WEEKLY)
     Route: 065
     Dates: start: 20100917
  29. METHOTREXATE [Suspect]
     Active Substance: METHOTREXATE
     Dosage: 17.5 MILLIGRAM
     Route: 065
     Dates: start: 20100917
  30. METHOTREXATE [Suspect]
     Active Substance: METHOTREXATE
     Dosage: 17.5 MILLIGRAM PER WEEK WEEKLY
     Route: 065
     Dates: start: 20100917
  31. METHOTREXATE [Suspect]
     Active Substance: METHOTREXATE
     Dosage: 17.5 MILLIGRAM, PER WEEK WEEKLY
     Route: 065
     Dates: start: 20100917
  32. METHOTREXATE [Suspect]
     Active Substance: METHOTREXATE
     Dosage: 17.5 MILLIGRAM, PER WEEK (17.5 MILLIGRAM, Q.W., UNK UNK, Q.W., WEEKLY, AT 17.5 (UNKNOWN UNIT))
     Route: 065
     Dates: start: 20100917
  33. METHOTREXATE [Suspect]
     Active Substance: METHOTREXATE
     Dosage: 17.5 MILLIGRAM, UNKNOWN
     Route: 065
     Dates: start: 20100917
  34. METHOTREXATE [Suspect]
     Active Substance: METHOTREXATE
     Dosage: UNK
     Route: 065
  35. METHOTREXATE [Suspect]
     Active Substance: METHOTREXATE
     Dosage: 18 MILLIGRAM, PER WEEK WEEKLY (AT 17.5, WEEKLY)
     Route: 065
  36. METHOTREXATE [Suspect]
     Active Substance: METHOTREXATE
     Dosage: UNK, 1 ONCE A WEEK (QW)
     Route: 065
  37. METHOTREXATE [Suspect]
     Active Substance: METHOTREXATE
     Dosage: 1, ONCE A WEEK, UNK, QW
     Route: 065
  38. AMOXICILLIN [Suspect]
     Active Substance: AMOXICILLIN
     Indication: Abdominal discomfort
     Dosage: 125 MG/ 5 ML
     Route: 065
     Dates: start: 20210904
  39. AMOXICILLIN [Suspect]
     Active Substance: AMOXICILLIN
     Dosage: 125 MG/5ML
     Route: 065
  40. AMOXICILLIN [Suspect]
     Active Substance: AMOXICILLIN
     Dosage: 25 MG (125 MG/ 5 ML (FROM 04 SEP 2021))
     Route: 065
  41. AMOXICILLIN [Suspect]
     Active Substance: AMOXICILLIN
     Dosage: 125 MG/ 5 ML
     Route: 065
  42. IRBESARTAN [Suspect]
     Active Substance: IRBESARTAN
     Indication: Rheumatoid arthritis
     Dosage: UNK
     Route: 065
  43. IRBESARTAN [Suspect]
     Active Substance: IRBESARTAN
     Indication: Abdominal discomfort
     Dosage: 15 MILLIGRAM, UNK
     Route: 065
  44. IRBESARTAN [Suspect]
     Active Substance: IRBESARTAN
     Indication: Depression
     Dosage: 150 GRAM, PER DAY QD
     Route: 065
     Dates: start: 20100912
  45. IRBESARTAN [Suspect]
     Active Substance: IRBESARTAN
     Indication: Abdominal discomfort
     Dosage: 150 GRAM, QD (PER DAY)
     Route: 065
     Dates: start: 20100917
  46. IRBESARTAN [Suspect]
     Active Substance: IRBESARTAN
     Dosage: 150 G, QD
     Route: 065
     Dates: start: 20100917
  47. IRBESARTAN [Suspect]
     Active Substance: IRBESARTAN
     Dosage: 150 GRAM, PER DAY
     Route: 065
     Dates: start: 20100917
  48. IRBESARTAN [Suspect]
     Active Substance: IRBESARTAN
     Dosage: 150 GRAM, QD
     Route: 065
     Dates: start: 20100912
  49. IRBESARTAN [Suspect]
     Active Substance: IRBESARTAN
     Dosage: 150 MILLIGRAM, QD
     Route: 065
     Dates: start: 20100917
  50. IRBESARTAN [Suspect]
     Active Substance: IRBESARTAN
     Dosage: UNK
     Route: 065
  51. IRBESARTAN [Suspect]
     Active Substance: IRBESARTAN
     Dosage: 150 GRAM, UNK
     Route: 065
     Dates: start: 20100917
  52. IRBESARTAN [Suspect]
     Active Substance: IRBESARTAN
     Dosage: 150 G, QD
     Route: 065
     Dates: start: 20100912
  53. IRBESARTAN [Suspect]
     Active Substance: IRBESARTAN
     Dosage: 150 GRAM, QD
     Route: 048
     Dates: start: 20100917
  54. IRBESARTAN [Suspect]
     Active Substance: IRBESARTAN
     Dosage: 150 MILLIGRAM, QD TABLET (UNCOATED)
     Route: 048
     Dates: start: 20100917
  55. IRBESARTAN [Suspect]
     Active Substance: IRBESARTAN
     Dosage: 150 GRAM, QD
     Route: 048
  56. IRBESARTAN [Suspect]
     Active Substance: IRBESARTAN
     Dosage: 150 GRAM, QD
     Route: 048
  57. VENLAFAXINE [Suspect]
     Active Substance: VENLAFAXINE HYDROCHLORIDE
     Indication: Rheumatoid arthritis
     Dosage: UNK(PROLONGED-RELEASE TABLET )
     Route: 065
  58. VENLAFAXINE [Suspect]
     Active Substance: VENLAFAXINE HYDROCHLORIDE
     Indication: Depression
     Dosage: 225 MILLIGRAM, QD(PROLONGED-RELEASE TABLET )
     Route: 065
  59. VENLAFAXINE [Suspect]
     Active Substance: VENLAFAXINE HYDROCHLORIDE
     Indication: Product used for unknown indication
     Dosage: 225 MILLIGRAM, QD(PROLONGED-RELEASE CAPSULE, HARD )
     Route: 065
  60. VENLAFAXINE [Suspect]
     Active Substance: VENLAFAXINE HYDROCHLORIDE
     Dosage: UNK
     Route: 065
  61. VENLAFAXINE [Suspect]
     Active Substance: VENLAFAXINE HYDROCHLORIDE
     Dosage: 225 MILLIGRAM, QD
     Route: 065
  62. VENLAFAXINE [Suspect]
     Active Substance: VENLAFAXINE HYDROCHLORIDE
     Dosage: 225 MILLIGRAM, QD (PROLONGED RELEASE,225 MG, DAILY)
     Route: 065
  63. VENLAFAXINE [Suspect]
     Active Substance: VENLAFAXINE HYDROCHLORIDE
     Dosage: 225 MILLIGRAM, QD (PROLONGED RELEASE,225 MG, DAILY)
     Route: 065
  64. CETIRIZINE [Suspect]
     Active Substance: CETIRIZINE HYDROCHLORIDE
     Indication: Abdominal discomfort
     Dosage: UNK
     Route: 065
  65. CETIRIZINE [Suspect]
     Active Substance: CETIRIZINE HYDROCHLORIDE
     Dosage: UNK
     Route: 065
  66. CETIRIZINE [Suspect]
     Active Substance: CETIRIZINE HYDROCHLORIDE
     Dosage: UNK
     Route: 065
  67. CABERGOLINE [Suspect]
     Active Substance: CABERGOLINE
     Indication: Empty sella syndrome
     Dosage: UNK
     Route: 065
  68. CABERGOLINE [Suspect]
     Active Substance: CABERGOLINE
     Indication: Pituitary tumour
     Dosage: UNK
     Route: 065
  69. CABERGOLINE [Suspect]
     Active Substance: CABERGOLINE
     Dosage: UNK
     Route: 065
  70. CABERGOLINE [Suspect]
     Active Substance: CABERGOLINE
     Dosage: UNK
     Route: 065
  71. CIPROFLOXACIN [Suspect]
     Active Substance: CIPROFLOXACIN
     Indication: Product used for unknown indication
     Dosage: 1000 MG, QD
     Route: 065
     Dates: start: 20100917
  72. CIPROFLOXACIN [Suspect]
     Active Substance: CIPROFLOXACIN
     Indication: Abdominal discomfort
     Dosage: UNK FILM-COATED TABLET
     Route: 065
  73. CIPROFLOXACIN [Suspect]
     Active Substance: CIPROFLOXACIN
     Indication: Rheumatoid arthritis
     Dosage: UNK FILM-COATED TABLET
     Route: 065
  74. CIPROFLOXACIN [Suspect]
     Active Substance: CIPROFLOXACIN
     Indication: Depression
     Dosage: 1000 MILLIGRAM PER DAY DAILY
     Route: 065
     Dates: start: 20100917
  75. CIPROFLOXACIN [Suspect]
     Active Substance: CIPROFLOXACIN
     Indication: Abdominal discomfort
     Dosage: 1000 MILLIGRAM PER DAY QD
     Route: 065
     Dates: start: 20100917
  76. CIPROFLOXACIN [Suspect]
     Active Substance: CIPROFLOXACIN
     Dosage: 1000 MILLIGRAM, QD
     Route: 065
     Dates: start: 20100917
  77. CIPROFLOXACIN [Suspect]
     Active Substance: CIPROFLOXACIN
     Dosage: 1000 MILLIGRAM, QD FILM-COATED TABLET
     Route: 065
     Dates: start: 20100917
  78. CIPROFLOXACIN [Suspect]
     Active Substance: CIPROFLOXACIN
     Dosage: 1000 MILLIGRAM PER DAY DAILY
     Route: 065
     Dates: start: 20100917
  79. CIPROFLOXACIN [Suspect]
     Active Substance: CIPROFLOXACIN
     Dosage: 1000 MILLIGRAM, QD FILM-COATED TABLET (CUMULATIVE DOSE TO FIRST REACTION: 14000.0 MG)
     Route: 065
     Dates: start: 20200917
  80. CIPROFLOXACIN [Suspect]
     Active Substance: CIPROFLOXACIN
     Dosage: 1000 MILLIGRAM, QD FILM-COATED TABLET
     Route: 065
     Dates: start: 20200917
  81. CIPROFLOXACIN [Suspect]
     Active Substance: CIPROFLOXACIN
     Dosage: 1000 MILLIGRAM, QD (PER DAY) FILM-COATED TABLET
     Route: 065
     Dates: start: 20200917
  82. CIPROFLOXACIN [Suspect]
     Active Substance: CIPROFLOXACIN
     Dosage: 1000 MILLIGRAM, QD (PER DAY) FILM-COATED TABLET
     Route: 065
     Dates: start: 20200917
  83. CIPROFLOXACIN [Suspect]
     Active Substance: CIPROFLOXACIN
     Dosage: 1000 MILLIGRAM PER DAY
     Route: 065
     Dates: start: 20200917
  84. CIPROFLOXACIN [Suspect]
     Active Substance: CIPROFLOXACIN
     Dosage: UNK FILM-COATED TABLET
     Route: 065
  85. CIPROFLOXACIN [Suspect]
     Active Substance: CIPROFLOXACIN
     Dosage: UNK FILM-COATED TABLET
     Route: 065
  86. CARBOCYSTEINE [Suspect]
     Active Substance: CARBOCYSTEINE
     Indication: Rheumatoid arthritis
     Dosage: UNK
     Route: 065
  87. CARBOCYSTEINE [Suspect]
     Active Substance: CARBOCYSTEINE
     Indication: Depression
     Dosage: 750 MG, QD
     Route: 065
     Dates: start: 20100917
  88. CARBOCYSTEINE [Suspect]
     Active Substance: CARBOCYSTEINE
     Dosage: 750 MILLIGRAM PER DAY
     Route: 065
     Dates: start: 20100917
  89. CARBOCYSTEINE [Suspect]
     Active Substance: CARBOCYSTEINE
     Dosage: 750 MILLIGRAM, QD
     Route: 065
     Dates: start: 20100917
  90. CARBOCYSTEINE [Suspect]
     Active Substance: CARBOCYSTEINE
     Dosage: 750 MILLIGRAM PER DAY
     Route: 065
     Dates: start: 20100917
  91. CARBOCYSTEINE [Suspect]
     Active Substance: CARBOCYSTEINE
     Dosage: 750 MILLIGRAM, QD
     Route: 065
  92. CARBOCYSTEINE [Suspect]
     Active Substance: CARBOCYSTEINE
     Dosage: 750 MILLIGRAM PER DAY DAILY; ADDITIONAL INFO: MEDICATION ERROR, MISUSE
     Route: 065
     Dates: start: 20100917
  93. CARBOCYSTEINE [Suspect]
     Active Substance: CARBOCYSTEINE
     Dosage: 750 MG, QD
     Route: 065
     Dates: start: 20120917
  94. CARBOCYSTEINE [Suspect]
     Active Substance: CARBOCYSTEINE
     Dosage: 750 MILLIGRAM, QD (CUMULATIVE DOSE: 10500.0 MG)
     Route: 065
     Dates: start: 20200917
  95. CARBOCYSTEINE [Suspect]
     Active Substance: CARBOCYSTEINE
     Dosage: 750 MILLIGRAM, PER DAY
     Route: 065
     Dates: start: 20200917
  96. CARBOCYSTEINE [Suspect]
     Active Substance: CARBOCYSTEINE
     Dosage: 750 MILLIGRAM, QD (PER DAY) (START DATE: 17-SEP-2021) (CUMULATIVE DOSE: 263250.0 MG)
     Route: 065
  97. CARBOCYSTEINE [Suspect]
     Active Substance: CARBOCYSTEINE
     Dosage: 750 MILLIGRAM, PER DAY QD
     Route: 065
  98. CARBOCYSTEINE [Suspect]
     Active Substance: CARBOCYSTEINE
     Dosage: 750 MILLIGRAM, PER DAY QD
     Route: 065
  99. ENBREL [Suspect]
     Active Substance: ETANERCEPT
     Indication: Rheumatoid arthritis
     Dosage: 50 MILLIGRAM, ONCE A WEEK  SOLUTION FOR INJECTION IN PRE-FILLED PEN (MYCLIC PEN)
     Route: 065
     Dates: start: 20100917
  100. ENBREL [Suspect]
     Active Substance: ETANERCEPT
     Dosage: 50 MG, QW, (MYCLIC PEN SOLUTION FOR INJECTION IN PRE-FILLED PEN)
     Route: 058
     Dates: start: 20100917
  101. ENBREL [Suspect]
     Active Substance: ETANERCEPT
     Dosage: UNK (MYCLIC PEN)
     Route: 065
  102. ENBREL [Suspect]
     Active Substance: ETANERCEPT
     Dosage: 50 MILLIGRAM, ONCE A WEEK  SOLUTION FOR INJECTION IN PRE-FILLED PEN (MYCLIC PEN) (CUMULATIVE DOSE TO
     Route: 065
  103. ENBREL [Suspect]
     Active Substance: ETANERCEPT
     Dosage: UNK (MYCLIC PEN)
     Route: 065
  104. PHYLLOCONTIN [Suspect]
     Active Substance: AMINOPHYLLINE
     Indication: Product used for unknown indication
     Dosage: 400 MG, QD
     Route: 065
     Dates: start: 20100917
  105. PHYLLOCONTIN [Suspect]
     Active Substance: AMINOPHYLLINE
     Indication: Product used for unknown indication
     Dosage: 400 MILLIGRAM, QD
     Route: 065
     Dates: start: 20100917
  106. PHYLLOCONTIN [Suspect]
     Active Substance: AMINOPHYLLINE
     Dosage: 400 MILLIGRAM PER DAY
     Route: 065
     Dates: start: 20100917
  107. PHYLLOCONTIN [Suspect]
     Active Substance: AMINOPHYLLINE
     Dosage: 400 MILLIGRAM PER DAY
     Route: 065
     Dates: start: 20100917
  108. PHYLLOCONTIN [Suspect]
     Active Substance: AMINOPHYLLINE
     Dosage: UNK
     Route: 065
  109. PHYLLOCONTIN [Suspect]
     Active Substance: AMINOPHYLLINE
     Dosage: 400 MILLIGRAM, QD (PER DAY) (CUMULATIVE DOSE TO FIRST REACTION: 5600.0 MG)
     Route: 065
     Dates: start: 20200917
  110. PHYLLOCONTIN [Suspect]
     Active Substance: AMINOPHYLLINE
     Dosage: 400 MILLIGRAM, QD (PER DAY) (CUMULATIVE DOSE TO FIRST REACTION: 5600.0 MG)
     Route: 065
     Dates: start: 20200917
  111. PHYLLOCONTIN [Suspect]
     Active Substance: AMINOPHYLLINE
     Dosage: 400 MILLIGRAM, QD (PER DAY)
     Route: 065
  112. PHYLLOCONTIN [Suspect]
     Active Substance: AMINOPHYLLINE
     Dosage: 400 MILLIGRAM, QD (PER DAY)
     Route: 065
  113. PHYLLOCONTIN [Suspect]
     Active Substance: AMINOPHYLLINE
     Dosage: 400 MILLIGRAM, QD (PER DAY)
     Route: 065
  114. PHYLLOCONTIN [Suspect]
     Active Substance: AMINOPHYLLINE
     Dosage: 400 MILLIGRAM, QD (PER DAY)
     Route: 065
  115. PHYLLOCONTIN [Suspect]
     Active Substance: AMINOPHYLLINE
     Dosage: 400 MILLIGRAM, QD (PER DAY) (CUMULATIVE DOSE TO FIRST REACTION: 5600.0 MG)
     Route: 065
     Dates: start: 20200917
  116. THEOPHYLLINE [Suspect]
     Active Substance: THEOPHYLLINE
     Indication: Depression
     Dosage: 750 MILLIGRAM, QD (PER DAY)
     Route: 065
  117. THEOPHYLLINE [Suspect]
     Active Substance: THEOPHYLLINE
     Indication: Abdominal discomfort
     Dosage: 750 MILLIGRAM, QD, ONCE A DAY
     Route: 065
  118. THEOPHYLLINE [Suspect]
     Active Substance: THEOPHYLLINE
     Dosage: 750 MILLIGRAM PER DAY
     Route: 065
  119. THEOPHYLLINE [Suspect]
     Active Substance: THEOPHYLLINE
     Dosage: UNK
     Route: 065
  120. VENLAFAXINE HYDROCHLORIDE [Suspect]
     Active Substance: VENLAFAXINE HYDROCHLORIDE
     Indication: Depression
     Dosage: 225 MILLIGRAM,DAILY, PROLONGED RELEASE
     Route: 065
     Dates: start: 20100917
  121. VENLAFAXINE HYDROCHLORIDE [Suspect]
     Active Substance: VENLAFAXINE HYDROCHLORIDE
     Indication: Rheumatoid arthritis
     Dosage: UNK PROLONGED RELEASE
     Route: 065
  122. VENLAFAXINE HYDROCHLORIDE [Suspect]
     Active Substance: VENLAFAXINE HYDROCHLORIDE
     Dosage: 225 MILLIGRAM, UNK
     Route: 065
  123. VENLAFAXINE HYDROCHLORIDE [Suspect]
     Active Substance: VENLAFAXINE HYDROCHLORIDE
     Dosage: 225 MILLIGRAM, QD, PROLONGED RELEASE
     Route: 065
  124. VENLAFAXINE HYDROCHLORIDE [Suspect]
     Active Substance: VENLAFAXINE HYDROCHLORIDE
     Dosage: 225 MILLIGRAM,DAILY, PER DAY PROLONGED RELEASE
     Route: 065
  125. VENLAFAXINE HYDROCHLORIDE [Suspect]
     Active Substance: VENLAFAXINE HYDROCHLORIDE
     Dosage: 225 MILLIGRAM DAILY, PER DAY PROLONGED RELEASE CAPSULE
     Route: 065
  126. VENLAFAXINE HYDROCHLORIDE [Suspect]
     Active Substance: VENLAFAXINE HYDROCHLORIDE
     Dosage: 225 MILLIGRAM, QD (ONCE A DAY, PROLONGED RELEASE)
     Route: 065
  127. VENLAFAXINE HYDROCHLORIDE [Suspect]
     Active Substance: VENLAFAXINE HYDROCHLORIDE
     Dosage: 225 MILLIGRAM PER DAY
     Route: 065
  128. VENLAFAXINE HYDROCHLORIDE [Suspect]
     Active Substance: VENLAFAXINE HYDROCHLORIDE
     Dosage: 225 MILLIGRAM, QD (ONCE A DAY, PROLONGED RELEASE)
     Route: 065
  129. VENLAFAXINE HYDROCHLORIDE [Suspect]
     Active Substance: VENLAFAXINE HYDROCHLORIDE
     Dosage: UNK PROLONGED RELEASE
     Route: 065
  130. VENLAFAXINE HYDROCHLORIDE [Suspect]
     Active Substance: VENLAFAXINE HYDROCHLORIDE
     Dosage: UNK PROLONGED RELEASE
     Route: 065
  131. VENLAFAXINE HYDROCHLORIDE [Suspect]
     Active Substance: VENLAFAXINE HYDROCHLORIDE
     Dosage: 225 MILLIGRAM, QD (ONCE A DAY, PROLONGED RELEASE)
     Route: 065
  132. VENLAFAXINE HYDROCHLORIDE [Suspect]
     Active Substance: VENLAFAXINE HYDROCHLORIDE
     Dosage: 225 MILLIGRAM, QD (ONCE A DAY, PROLONGED RELEASE)
     Route: 065
  133. CARBAMAZEPINE [Suspect]
     Active Substance: CARBAMAZEPINE
     Indication: Depression
     Dosage: 750 MILLIGRAM, QD (PER DAY)
     Route: 065
     Dates: start: 20100917
  134. CARBAMAZEPINE [Suspect]
     Active Substance: CARBAMAZEPINE
     Indication: Product used for unknown indication
     Dosage: 750 MG, QD
     Route: 065
     Dates: start: 20200917
  135. CARBAMAZEPINE [Suspect]
     Active Substance: CARBAMAZEPINE
     Dosage: 750 MILLIGRAM, QD (PER DAY)
     Route: 065
     Dates: start: 20200917
  136. CARBAMAZEPINE [Suspect]
     Active Substance: CARBAMAZEPINE
     Dosage: 750 MILLIGRAM, UNKNOWN
     Route: 065
  137. CARBAMAZEPINE [Suspect]
     Active Substance: CARBAMAZEPINE
     Dosage: UNK
     Route: 065
  138. CARBAMAZEPINE [Suspect]
     Active Substance: CARBAMAZEPINE
     Dosage: 750 MG, QD
     Route: 065
     Dates: start: 20100917
  139. CARBAMAZEPINE [Suspect]
     Active Substance: CARBAMAZEPINE
     Dosage: 750 MILLIGRAM, QD (PER DAY)
     Route: 065
  140. CARBAMAZEPINE [Suspect]
     Active Substance: CARBAMAZEPINE
     Dosage: 750 MILLIGRAM, QD (PER DAY)
     Route: 065
  141. CARBAMAZEPINE [Suspect]
     Active Substance: CARBAMAZEPINE
     Dosage: 750 MG, QD
     Route: 065
     Dates: start: 20210917
  142. CARBAMAZEPINE [Suspect]
     Active Substance: CARBAMAZEPINE
     Dosage: 750 MG, QD
     Route: 065
  143. CARBAMAZEPINE [Suspect]
     Active Substance: CARBAMAZEPINE
     Dosage: UNK
     Route: 065
  144. CARBAMAZEPINE [Suspect]
     Active Substance: CARBAMAZEPINE
     Dosage: 750 MG, QD
     Route: 065
  145. PROBIOTICS NOS [Suspect]
     Active Substance: PROBIOTICS NOS
     Indication: Abdominal discomfort
     Dosage: 750 MILLIGRAM, UNK
     Route: 065
  146. PROBIOTICS NOS [Suspect]
     Active Substance: PROBIOTICS NOS
     Indication: Depression
     Dosage: UNK
     Route: 065
  147. PROBIOTICS NOS [Suspect]
     Active Substance: PROBIOTICS NOS
     Indication: Pituitary tumour
     Dosage: UNK
     Route: 065
  148. PROBIOTICS NOS [Suspect]
     Active Substance: PROBIOTICS NOS
     Dosage: UNK
     Route: 065
  149. SULFAGUANIDINE [Suspect]
     Active Substance: SULFAGUANIDINE
     Indication: Abdominal discomfort
     Dosage: 750 MILLIGRAM PER DAY QD
     Route: 065
  150. SULFAGUANIDINE [Suspect]
     Active Substance: SULFAGUANIDINE
     Indication: Depression
     Dosage: 750 MILLIGRAM, QD
     Route: 065
  151. SULFAGUANIDINE [Suspect]
     Active Substance: SULFAGUANIDINE
     Dosage: 750 MILLIGRAM, QD (PER DAY)
     Route: 065
  152. SULFAGUANIDINE [Suspect]
     Active Substance: SULFAGUANIDINE
     Dosage: UNK
     Route: 065
  153. SULFAGUANIDINE [Suspect]
     Active Substance: SULFAGUANIDINE
     Dosage: 750 MILLIGRAM, QD (PER DAY)
     Route: 065
  154. SULFAGUANIDINE [Suspect]
     Active Substance: SULFAGUANIDINE
     Dosage: 750 MILLIGRAM, QD (PER DAY)
     Route: 065
  155. SULFAGUANIDINE [Suspect]
     Active Substance: SULFAGUANIDINE
     Dosage: 750 MILLIGRAM, QD (PER DAY)
     Route: 065
  156. SULFAGUANIDINE [Suspect]
     Active Substance: SULFAGUANIDINE
     Dosage: 750 MILLIGRAM, QD (PER DAY)
     Route: 065
  157. SIMETHICONE (DIMETHICONE) [Suspect]
     Active Substance: DIMETHICONE
     Indication: Product used for unknown indication
     Dosage: 750 MILLIGRAM
     Route: 065
  158. CHARCOAL ACTIVATED [Suspect]
     Active Substance: ACTIVATED CHARCOAL
     Indication: Product used for unknown indication
     Dosage: 750 MG
     Route: 065
  159. CHARCOAL ACTIVATED [Suspect]
     Active Substance: ACTIVATED CHARCOAL
     Indication: Depression
     Dosage: 750 MILLIGRAM, QD
     Route: 065
  160. CHARCOAL ACTIVATED [Suspect]
     Active Substance: ACTIVATED CHARCOAL
     Dosage: 750 MILLIGRAM, QD
     Route: 065
  161. CHARCOAL ACTIVATED [Suspect]
     Active Substance: ACTIVATED CHARCOAL
     Dosage: 750 MILLIGRAM, QD
     Route: 065
  162. CHARCOAL ACTIVATED [Suspect]
     Active Substance: ACTIVATED CHARCOAL
     Dosage: UNK
     Route: 065
  163. ZINC [Suspect]
     Active Substance: ZINC
     Indication: Abdominal discomfort
     Dosage: UNK (DIETHYLDITHIOCARBAMATE)
     Route: 065
  164. ZINC [Suspect]
     Active Substance: ZINC
     Indication: Depression
     Dosage: 750 MILLIGRAM, QD (DIETHYLDITHIOCARBAMATE)
     Route: 065
  165. ZINC [Suspect]
     Active Substance: ZINC
     Indication: Abdominal discomfort
     Dosage: 750 MILLIGRAM, PER DAY
     Route: 065
  166. ZINC [Suspect]
     Active Substance: ZINC
     Dosage: UNK
     Route: 065
  167. ZINC [Suspect]
     Active Substance: ZINC
     Dosage: 750 MILLIGRAM, QD
     Route: 065
  168. ZINC [Suspect]
     Active Substance: ZINC
     Dosage: UNK
     Route: 065
  169. ZINC [Suspect]
     Active Substance: ZINC
     Dosage: 750 MILLIGRAM, PER DAY
     Route: 065
  170. ZINC [Suspect]
     Active Substance: ZINC
     Dosage: 750 MILLIGRAM, UNK
     Route: 065
  171. ZINC [Suspect]
     Active Substance: ZINC
     Dosage: 750 MILLIGRAM (DIETHYLDITHIOCARBAMATE)
     Route: 065
  172. GUANIDINE [Suspect]
     Active Substance: GUANIDINE
     Indication: Abdominal discomfort
     Dosage: 750 MILLIGRAM PER DAY (1,3-DIPHENYLGUANIDINE), UNIT DOSE : 750 MG
     Route: 065
  173. GUANIDINE [Suspect]
     Active Substance: GUANIDINE
     Indication: Depression
     Dosage: 750 MILLIGRAM (1,3-DIPHENYLGUANIDINE)
     Route: 065
  174. GUANIDINE [Suspect]
     Active Substance: GUANIDINE
     Indication: Abdominal discomfort
     Dosage: 750 MILLIGRAM, 1,3-DIPHENYLGUANIDINE;
     Route: 065
  175. GUANIDINE [Suspect]
     Active Substance: GUANIDINE
     Dosage: UNK, 1,3-DIPHENYLGUANIDINE
     Route: 065
  176. GUANIDINE [Suspect]
     Active Substance: GUANIDINE
     Dosage: 750 MILLIGRAM PER DAY (1,3-DIPHENYLGUANIDINE)
     Route: 065
     Dates: start: 20100917
  177. GUANIDINE [Suspect]
     Active Substance: GUANIDINE
     Dosage: UNK, 1,3-DIPHENYLGUANIDINE
     Route: 065
  178. GUANIDINE [Suspect]
     Active Substance: GUANIDINE
     Dosage: 750 MILLIGRAM, PER DAY
     Route: 065
  179. GUANIDINE [Suspect]
     Active Substance: GUANIDINE
     Dosage: UNK
     Route: 065
  180. GUANIDINE [Suspect]
     Active Substance: GUANIDINE
     Dosage: UNK
     Route: 065
  181. GUANIDINE [Suspect]
     Active Substance: GUANIDINE
     Dosage: 750 MILLIGRAM, QD
     Route: 065
  182. GUANIDINE [Suspect]
     Active Substance: GUANIDINE
     Dosage: 750 MILLIGRAM, QD
     Route: 065
  183. GUANIDINE [Suspect]
     Active Substance: GUANIDINE
     Dosage: 750 MILLIGRAM, UNK
     Route: 065
  184. GUANIDINE [Suspect]
     Active Substance: GUANIDINE
     Dosage: 1 PER DAY,UNK  QD (1,3-DIPHENYLGUANIDINE)
     Route: 065
  185. GUANIDINE [Suspect]
     Active Substance: GUANIDINE
     Dosage: UNK
     Route: 065
  186. GUANIDINE [Suspect]
     Active Substance: GUANIDINE
     Dosage: UNK
     Route: 065
  187. BIFIDOBACTERIUM LONGUM [Suspect]
     Active Substance: BIFIDOBACTERIUM LONGUM
     Indication: Abdominal discomfort
     Dosage: 750 MILLIGRAM, UNK
     Route: 065
  188. BIFIDOBACTERIUM LONGUM [Suspect]
     Active Substance: BIFIDOBACTERIUM LONGUM
     Indication: Depression
     Dosage: 750 MILLIGRAM, UNK
     Route: 065
  189. BIFIDOBACTERIUM LONGUM [Suspect]
     Active Substance: BIFIDOBACTERIUM LONGUM
     Indication: Abdominal discomfort
     Dosage: 750 MILLIGRAM
     Route: 065
  190. BIFIDOBACTERIUM LONGUM [Suspect]
     Active Substance: BIFIDOBACTERIUM LONGUM
     Dosage: UNK
     Route: 065
  191. BIFIDOBACTERIUM LONGUM [Suspect]
     Active Substance: BIFIDOBACTERIUM LONGUM
     Dosage: UNK
     Route: 065
  192. LACTOBACILLUS RHAMNOSUS [Suspect]
     Active Substance: LACTOBACILLUS RHAMNOSUS
     Indication: Abdominal discomfort
     Dosage: 750 MILLIGRAM
     Route: 065
  193. LACTOBACILLUS RHAMNOSUS [Suspect]
     Active Substance: LACTOBACILLUS RHAMNOSUS
     Indication: Depression
     Dosage: UNK
     Route: 065
  194. LACTOBACILLUS RHAMNOSUS [Suspect]
     Active Substance: LACTOBACILLUS RHAMNOSUS
     Indication: Abdominal discomfort
  195. CARBAMAZEPINE [Suspect]
     Active Substance: CARBAMAZEPINE
     Indication: Depression
     Dosage: 750 MILLIGRAM, QD
     Route: 065
     Dates: start: 20100917
  196. CARBAMAZEPINE [Suspect]
     Active Substance: CARBAMAZEPINE
     Dosage: 1000 MILLIGRAM, QD
     Route: 065
     Dates: start: 20100917
  197. CARBAMAZEPINE [Suspect]
     Active Substance: CARBAMAZEPINE
     Dosage: 750 MILLIGRAM, QD
     Route: 065
  198. CARBAMAZEPINE [Suspect]
     Active Substance: CARBAMAZEPINE
     Dosage: 750 MILLIGRAM, QD
     Route: 065
     Dates: start: 20200917
  199. CARBAMAZEPINE [Suspect]
     Active Substance: CARBAMAZEPINE
     Dosage: 750 MILLIGRAM, QD
     Route: 065
     Dates: start: 20210917
  200. BENDROFLUMETHIAZIDE [Concomitant]
     Active Substance: BENDROFLUMETHIAZIDE
     Indication: Pituitary tumour
     Dosage: UNK
     Route: 065
  201. BENDROFLUMETHIAZIDE [Concomitant]
     Active Substance: BENDROFLUMETHIAZIDE
     Indication: Depression
     Dosage: UNK
     Route: 065
  202. BENDROFLUMETHIAZIDE [Concomitant]
     Active Substance: BENDROFLUMETHIAZIDE
     Indication: Pituitary tumour
     Dosage: 750 MILLIGRAM
     Route: 065
  203. BENDROFLUMETHIAZIDE [Concomitant]
     Active Substance: BENDROFLUMETHIAZIDE
     Dosage: 750 MILLIGRAM, UNK
     Route: 065
  204. BENDROFLUMETHIAZIDE [Concomitant]
     Active Substance: BENDROFLUMETHIAZIDE
     Dosage: UNK MILLIGRAM
     Route: 065
  205. BENDROFLUMETHIAZIDE [Concomitant]
     Active Substance: BENDROFLUMETHIAZIDE
     Dosage: 750 MILLIGRAM
     Route: 065
  206. BENDROFLUMETHIAZIDE [Concomitant]
     Active Substance: BENDROFLUMETHIAZIDE
     Dosage: UNK
     Route: 065
  207. BENDROFLUMETHIAZIDE [Concomitant]
     Active Substance: BENDROFLUMETHIAZIDE
     Dosage: UNK
     Route: 065
  208. BENDROFLUMETHIAZIDE [Concomitant]
     Active Substance: BENDROFLUMETHIAZIDE
     Dosage: UNK
     Route: 065
  209. BENDROFLUMETHIAZIDE [Concomitant]
     Active Substance: BENDROFLUMETHIAZIDE
     Dosage: UNK
     Route: 065
  210. BENDROFLUMETHIAZIDE [Concomitant]
     Active Substance: BENDROFLUMETHIAZIDE
     Dosage: UNK
     Route: 065
  211. EZETIMIBE [Concomitant]
     Active Substance: EZETIMIBE
     Indication: Product used for unknown indication
     Dosage: UNK
     Route: 065
  212. EZETIMIBE [Concomitant]
     Active Substance: EZETIMIBE
     Indication: Product used for unknown indication
     Dosage: 50 MG, QW, MYCLIC PEN
     Route: 065
     Dates: start: 20100917
  213. EZETIMIBE [Concomitant]
     Active Substance: EZETIMIBE
     Indication: Depression
     Dosage: 50 MG, QW, MYCLIC PEN
     Route: 065
     Dates: start: 20210917
  214. EZETIMIBE [Concomitant]
     Active Substance: EZETIMIBE
     Dosage: UNK
     Route: 065
  215. EZETIMIBE [Concomitant]
     Active Substance: EZETIMIBE
     Dosage: UNK
     Route: 065
  216. EZETIMIBE [Concomitant]
     Active Substance: EZETIMIBE
     Dosage: UNK
     Route: 065
  217. EZETIMIBE [Concomitant]
     Active Substance: EZETIMIBE
     Dosage: UNK
     Route: 065
  218. EZETIMIBE [Concomitant]
     Active Substance: EZETIMIBE
     Dosage: UNK
     Route: 065
  219. EZETIMIBE [Concomitant]
     Active Substance: EZETIMIBE
     Dosage: UNK
     Route: 065
  220. FOLIC ACID [Concomitant]
     Active Substance: FOLIC ACID
     Indication: Product used for unknown indication
     Dosage: UNK
     Route: 065
  221. FOLIC ACID [Concomitant]
     Active Substance: FOLIC ACID
     Indication: Product used for unknown indication
     Dosage: UNK
     Route: 065
  222. FOLIC ACID [Concomitant]
     Active Substance: FOLIC ACID
     Indication: Abdominal discomfort
     Dosage: UNK
     Route: 065
  223. FOLIC ACID [Concomitant]
     Active Substance: FOLIC ACID
     Dosage: UNK
     Route: 065
  224. FOLIC ACID [Concomitant]
     Active Substance: FOLIC ACID
     Dosage: UNK
     Route: 065
  225. FOLIC ACID [Concomitant]
     Active Substance: FOLIC ACID
     Dosage: UNK
     Route: 065
  226. FOLIC ACID [Concomitant]
     Active Substance: FOLIC ACID
     Dosage: UNK
     Route: 065
  227. ACTIVATED CHARCOAL [Concomitant]
     Active Substance: ACTIVATED CHARCOAL
     Indication: Product used for unknown indication
     Dosage: 750 MILLIGRAM, UNK
     Route: 065
  228. ACTIVATED CHARCOAL [Concomitant]
     Active Substance: ACTIVATED CHARCOAL
     Dosage: 750 MILLIGRAM, UNK
     Route: 065
  229. ACTIVATED CHARCOAL [Concomitant]
     Active Substance: ACTIVATED CHARCOAL
     Dosage: 750 MILLIGRAM, UNK
     Route: 065
  230. ACTIVATED CHARCOAL [Concomitant]
     Active Substance: ACTIVATED CHARCOAL
     Dosage: 750 MILLIGRAM PER DAY QD
     Route: 065
  231. ACTIVATED CHARCOAL [Concomitant]
     Active Substance: ACTIVATED CHARCOAL
     Dosage: 750 MILLIGRAM PER DAY QD
     Route: 065
  232. ACTIVATED CHARCOAL [Concomitant]
     Active Substance: ACTIVATED CHARCOAL
     Dosage: UNK
     Route: 065
  233. ACTIVATED CHARCOAL [Concomitant]
     Active Substance: ACTIVATED CHARCOAL
     Dosage: 750 MILLIGRAM, UNK
     Route: 065
  234. ACTIVATED CHARCOAL [Concomitant]
     Active Substance: ACTIVATED CHARCOAL
     Dosage: 750 MILLIGRAM, UNK
     Route: 065
  235. LEVOTHYROXINE [Concomitant]
     Active Substance: LEVOTHYROXINE
     Indication: Abdominal discomfort
     Dosage: UNK
     Route: 065
  236. LEVOTHYROXINE [Concomitant]
     Active Substance: LEVOTHYROXINE
     Indication: Abdominal discomfort
     Dosage: UNK
     Route: 016
  237. LEVOTHYROXINE [Concomitant]
     Active Substance: LEVOTHYROXINE
     Dosage: UNK
     Route: 016
  238. LEVOTHYROXINE [Concomitant]
     Active Substance: LEVOTHYROXINE
     Dosage: UNK
     Route: 065
  239. LEVOTHYROXINE [Concomitant]
     Active Substance: LEVOTHYROXINE
     Dosage: UNK
     Route: 065
  240. ORUVAIL [Concomitant]
     Active Substance: KETOPROFEN
     Indication: Empty sella syndrome
     Dosage: UNK
     Route: 065
  241. ORUVAIL [Concomitant]
     Active Substance: KETOPROFEN
     Dosage: UNK
     Route: 065
  242. ORUVAIL [Concomitant]
     Active Substance: KETOPROFEN
     Dosage: UNK
     Route: 065
  243. ORUVAIL [Concomitant]
     Active Substance: KETOPROFEN
     Dosage: UNK
     Route: 065
  244. ORUVAIL [Concomitant]
     Active Substance: KETOPROFEN
     Dosage: UNK
     Route: 065
  245. ORUVAIL [Concomitant]
     Active Substance: KETOPROFEN
     Dosage: UNK
     Route: 065
  246. ORUVAIL [Concomitant]
     Active Substance: KETOPROFEN
     Dosage: UNK
     Route: 065
  247. ORUVAIL [Concomitant]
     Active Substance: KETOPROFEN
     Dosage: UNK
     Route: 065
  248. ORUVAIL [Concomitant]
     Active Substance: KETOPROFEN
     Dosage: UNK
  249. ORUVAIL [Concomitant]
     Active Substance: KETOPROFEN
     Dosage: UNK
     Route: 065
  250. ORUVAIL [Concomitant]
     Active Substance: KETOPROFEN
     Dosage: UNK
     Route: 065
  251. ORUVAIL [Concomitant]
     Active Substance: KETOPROFEN
     Dosage: UNK
     Route: 065
  252. DOXYCYCLINE [Concomitant]
     Active Substance: DOXYCYCLINE
     Indication: Pulmonary pain
     Dosage: UNK
     Route: 065
  253. DOXYCYCLINE [Concomitant]
     Active Substance: DOXYCYCLINE
     Indication: Lower respiratory tract infection
  254. DIETARY SUPPLEMENT [Concomitant]
     Active Substance: DIETARY SUPPLEMENT
     Indication: Product used for unknown indication
     Dosage: 750 MILLIGRAM
     Route: 065
  255. DIETARY SUPPLEMENT [Concomitant]
     Active Substance: DIETARY SUPPLEMENT
     Dosage: 750 MILLIGRAM, QD
     Route: 065
  256. DIETARY SUPPLEMENT [Concomitant]
     Active Substance: DIETARY SUPPLEMENT
     Dosage: 750 MILLIGRAM, QD
     Route: 065
  257. DIETARY SUPPLEMENT [Concomitant]
     Active Substance: DIETARY SUPPLEMENT
     Dosage: 750 MILLIGRAM, QD
     Route: 065
  258. CABERGOLINE [Concomitant]
     Active Substance: CABERGOLINE
     Indication: Empty sella syndrome
     Dosage: UNK
     Route: 065
  259. CABERGOLINE [Concomitant]
     Active Substance: CABERGOLINE
     Indication: Pituitary tumour
     Dosage: UNK
     Route: 065
  260. CABERGOLINE [Concomitant]
     Active Substance: CABERGOLINE
     Indication: Pituitary tumour
     Dosage: UNK
     Route: 065
  261. CABERGOLINE [Concomitant]
     Active Substance: CABERGOLINE
     Indication: Rheumatoid arthritis
     Dosage: UNK
     Route: 065
  262. CABERGOLINE [Concomitant]
     Active Substance: CABERGOLINE
     Dosage: UNK
     Route: 065
  263. CABERGOLINE [Concomitant]
     Active Substance: CABERGOLINE
     Dosage: UNK
     Route: 065
  264. CABERGOLINE [Concomitant]
     Active Substance: CABERGOLINE
     Dosage: UNK
     Route: 065
  265. CABERGOLINE [Concomitant]
     Active Substance: CABERGOLINE
     Dosage: UNK
     Route: 065
  266. CABERGOLINE [Concomitant]
     Active Substance: CABERGOLINE
     Dosage: UNK
     Route: 065
  267. CABERGOLINE [Concomitant]
     Active Substance: CABERGOLINE
     Dosage: UNK
     Route: 065
  268. CABERGOLINE [Concomitant]
     Active Substance: CABERGOLINE
     Dosage: UNK
     Route: 065
  269. CETIRIZINE [Concomitant]
     Active Substance: CETIRIZINE HYDROCHLORIDE
     Indication: Abdominal discomfort
     Dosage: UNK
     Route: 065
  270. CETIRIZINE [Concomitant]
     Active Substance: CETIRIZINE HYDROCHLORIDE
     Indication: Product used for unknown indication
     Dosage: UNK
     Route: 065
  271. CETIRIZINE [Concomitant]
     Active Substance: CETIRIZINE HYDROCHLORIDE
     Dosage: UNK, QD
     Route: 065
  272. CETIRIZINE [Concomitant]
     Active Substance: CETIRIZINE HYDROCHLORIDE
     Dosage: UNK
     Route: 065
  273. THEOPHYLLINE [Concomitant]
     Active Substance: THEOPHYLLINE
     Indication: Abdominal discomfort
     Dosage: 750 MILLIGRAM, QD
     Route: 065
  274. THEOPHYLLINE [Concomitant]
     Active Substance: THEOPHYLLINE
     Indication: Depression
     Dosage: UNK
     Route: 065
  275. CHARCOAL ACTIVATED [Concomitant]
     Active Substance: ACTIVATED CHARCOAL
     Indication: Product used for unknown indication
     Dosage: 750 MILLIGRAM
     Route: 065
  276. CHARCOAL ACTIVATED [Concomitant]
     Active Substance: ACTIVATED CHARCOAL
     Dosage: 750 MILLIGRAM
     Route: 065
  277. CHARCOAL ACTIVATED [Concomitant]
     Active Substance: ACTIVATED CHARCOAL
     Dosage: 750 MILLIGRAM, QD
     Route: 065
  278. CHARCOAL ACTIVATED [Concomitant]
     Active Substance: ACTIVATED CHARCOAL
     Dosage: 750 MILLIGRAM, QD
     Route: 065
  279. CHARCOAL ACTIVATED [Concomitant]
     Active Substance: ACTIVATED CHARCOAL
     Dosage: 750 MILLIGRAM
     Route: 065

REACTIONS (20)
  - Pulmonary pain [Unknown]
  - Condition aggravated [Unknown]
  - Abdominal discomfort [Unknown]
  - Arthropathy [Unknown]
  - Condition aggravated [Unknown]
  - Amyloid arthropathy [Unknown]
  - Obesity [Unknown]
  - Condition aggravated [Unknown]
  - Knee arthroplasty [Unknown]
  - Lower respiratory tract infection [Not Recovered/Not Resolved]
  - Rash [Not Recovered/Not Resolved]
  - Rash [Not Recovered/Not Resolved]
  - Rash [Not Recovered/Not Resolved]
  - Intentional product misuse [Unknown]
  - Drug abuse [Unknown]
  - Product dose omission issue [Unknown]
  - Product dose omission issue [Unknown]
  - Medication error [Unknown]
  - Overdose [Unknown]
  - Off label use [Unknown]

NARRATIVE: CASE EVENT DATE: 20201001
